FAERS Safety Report 6592739-7 (Version None)
Quarter: 2010Q1

REPORT INFORMATION
  Report Type: 
  Country: None (occurrence: None)
  Receive Date: 20100212
  Receipt Date: 20100129
  Transmission Date: 20100710
  Serious: Yes (Other)
  Sender: FDA-Public Use
  Company Number: CV20100051

PATIENT
  Age: 55 Year
  Sex: Female

DRUGS (1)
  1. POTASSIUM CHLORIDE [Suspect]
     Indication: DRUG USE FOR UNKNOWN INDICATION
     Dosage: 35 ML, EPIDURAL
     Route: 008

REACTIONS (9)
  - DISTURBANCE IN ATTENTION [None]
  - HYPERHIDROSIS [None]
  - HYPERTONIA [None]
  - INCORRECT ROUTE OF DRUG ADMINISTRATION [None]
  - MYDRIASIS [None]
  - PARAESTHESIA [None]
  - PARAPLEGIA [None]
  - RESPIRATORY FAILURE [None]
  - TACHYCARDIA [None]
